FAERS Safety Report 9096307 (Version 1)
Quarter: 2013Q1

REPORT INFORMATION
  Report Type: Report from Study
  Country: CA (occurrence: CA)
  Receive Date: 20130207
  Receipt Date: 20130207
  Transmission Date: 20140127
  Serious: Yes (Other)
  Sender: FDA-Public Use
  Company Number: CA-JNJFOC-20130114957

PATIENT
  Age: 31 None
  Sex: Female
  Weight: 44.45 kg

DRUGS (7)
  1. REMICADE [Suspect]
     Indication: CROHN^S DISEASE
     Route: 042
     Dates: start: 201109
  2. TYLENOL 3 [Suspect]
     Indication: PAIN
     Route: 065
  3. IMODIUM [Suspect]
     Indication: PRODUCT USED FOR UNKNOWN INDICATION
     Route: 065
  4. VENTOLIN [Suspect]
     Indication: PRODUCT USED FOR UNKNOWN INDICATION
     Route: 065
  5. TECTA [Suspect]
     Indication: GASTROOESOPHAGEAL REFLUX DISEASE
     Route: 065
  6. CIPRALEX [Suspect]
     Indication: ANXIETY
     Route: 065
  7. MULTIVITAMINS [Concomitant]
     Route: 065

REACTIONS (7)
  - Abortion spontaneous [Recovered/Resolved]
  - Lung infection [Recovering/Resolving]
  - Exposure during pregnancy [Recovered/Resolved]
  - Blood iron decreased [Unknown]
  - Rheumatoid factor increased [Unknown]
  - Arthralgia [Not Recovered/Not Resolved]
  - Melanocytic naevus [Recovering/Resolving]
